FAERS Safety Report 17663852 (Version 1)
Quarter: 2020Q2

REPORT INFORMATION
  Report Type: Report from Study
  Country: US (occurrence: US)
  Receive Date: 20200414
  Receipt Date: 20200414
  Transmission Date: 20200713
  Serious: Yes (Hospitalization)
  Sender: FDA-Public Use
  Company Number: US-ROCHE-2580855

PATIENT
  Sex: Male

DRUGS (2)
  1. RITUXAN [Suspect]
     Active Substance: RITUXIMAB
     Indication: THROMBOCYTOPENIA
     Dosage: INFUSE 800MG INTRAVENOUSLY EVERY WEEK FOR 4 WEEKS, 50ML VIAL
     Route: 041
  2. RITUXAN [Suspect]
     Active Substance: RITUXIMAB
     Indication: IMMUNE THROMBOCYTOPENIA
     Dosage: INFUSE 800MG INTRAVENOUSLY EVERY WEEK FOR 4 WEEKS, 10 ML VIAL
     Route: 041

REACTIONS (3)
  - Limb injury [Unknown]
  - Intentional product use issue [Unknown]
  - Off label use [Unknown]
